FAERS Safety Report 8160374-5 (Version None)
Quarter: 2012Q1

REPORT INFORMATION
  Report Type: 
  Country: None (occurrence: None)
  Receive Date: 20120223
  Receipt Date: 20120215
  Transmission Date: 20120608
  Serious: Yes (Other)
  Sender: FDA-Public Use
  Company Number: DE-CUBIST-2011S1000149

PATIENT
  Weight: 75 kg

DRUGS (13)
  1. CUBICIN [Suspect]
     Indication: SEPSIS
     Route: 042
     Dates: start: 20110116, end: 20110119
  2. CUBICIN [Suspect]
     Route: 042
     Dates: start: 20110116, end: 20110119
  3. CUBICIN [Suspect]
     Route: 042
     Dates: start: 20110116, end: 20110119
  4. NOVORAPID [Concomitant]
     Indication: PRODUCT USED FOR UNKNOWN INDICATION
     Route: 065
     Dates: start: 20101229
  5. PERAZINE [Concomitant]
     Indication: PRODUCT USED FOR UNKNOWN INDICATION
     Route: 065
     Dates: start: 20110106, end: 20110131
  6. PANTOPRAZOLE SODIUM [Concomitant]
     Indication: PRODUCT USED FOR UNKNOWN INDICATION
     Route: 065
     Dates: start: 20101229
  7. STATIN /00084401/ [Concomitant]
     Indication: PRODUCT USED FOR UNKNOWN INDICATION
     Dosage: DOSE UNIT:U UNKNOWN
     Route: 065
  8. CORTICOSTEROID NOS [Concomitant]
     Indication: PRODUCT USED FOR UNKNOWN INDICATION
     Route: 065
  9. ARMODAFINIL [Concomitant]
     Indication: PRODUCT USED FOR UNKNOWN INDICATION
     Route: 065
     Dates: start: 20110111, end: 20110119
  10. CUBICIN [Suspect]
     Route: 042
     Dates: start: 20110116, end: 20110119
  11. CUBICIN [Suspect]
     Indication: WOUND INFECTION
     Route: 042
     Dates: start: 20110116, end: 20110119
  12. CUBICIN [Suspect]
     Indication: LOCALISED INFECTION
     Route: 042
     Dates: start: 20110116, end: 20110119
  13. FENISTIL [Concomitant]
     Indication: PRODUCT USED FOR UNKNOWN INDICATION
     Route: 065

REACTIONS (7)
  - HEPATITIS A ANTIBODY POSITIVE [None]
  - PRURITUS [None]
  - JAUNDICE [None]
  - BLOOD CREATININE INCREASED [None]
  - HEPATIC FUNCTION ABNORMAL [None]
  - ASPARTATE AMINOTRANSFERASE INCREASED [None]
  - ALANINE AMINOTRANSFERASE INCREASED [None]
